FAERS Safety Report 7466973-8 (Version None)
Quarter: 2011Q2

REPORT INFORMATION
  Report Type: 
  Country: None (occurrence: None)
  Receive Date: 20110509
  Receipt Date: 20110325
  Transmission Date: 20111010
  Serious: Yes (Hospitalization, Other)
  Sender: FDA-Public Use
  Company Number: US-BAYER-201036558NA

PATIENT
  Age: 29 Year
  Sex: Female
  Weight: 74.83 kg

DRUGS (7)
  1. AMOXICILLIN [Concomitant]
     Dosage: UNK
     Dates: start: 20080828
  2. SERTRALINE HYDROCHLORIDE [Concomitant]
     Indication: DEPRESSION
     Dosage: UNK
     Dates: start: 20080101
  3. AZITHROMYCIN [Concomitant]
     Dosage: UNK
     Dates: start: 20080724
  4. ZYRTEC [Concomitant]
     Dosage: UNK
     Dates: start: 20080101
  5. ALAVERT [Concomitant]
     Dosage: UNK
     Dates: start: 20080101
  6. YAZ [Suspect]
     Indication: ORAL CONTRACEPTION
     Dosage: UNK
     Route: 048
     Dates: start: 20071201, end: 20081001
  7. YAZ [Suspect]
     Indication: GENITAL HAEMORRHAGE

REACTIONS (3)
  - PAIN IN EXTREMITY [None]
  - DEEP VEIN THROMBOSIS [None]
  - PULMONARY EMBOLISM [None]
